FAERS Safety Report 6673438-X (Version None)
Quarter: 2010Q2

REPORT INFORMATION
  Report Type: 
  Country: None (occurrence: None)
  Receive Date: 20100408
  Receipt Date: 20100329
  Transmission Date: 20101027
  Serious: Yes (Hospitalization)
  Sender: FDA-Public Use
  Company Number: FR-PFIZER INC-2010039638

PATIENT
  Age: 60 Year
  Sex: Male
  Weight: 72 kg

DRUGS (11)
  1. BLINDED *PLACEBO [Suspect]
     Indication: SMOKING CESSATION THERAPY
     Dosage: UNK
     Dates: start: 20091123
  2. BLINDED VARENICLINE TARTRATE [Suspect]
     Indication: SMOKING CESSATION THERAPY
     Dosage: UNK
     Dates: start: 20091123
  3. TRUVADA [Concomitant]
     Indication: HIV INFECTION
     Dosage: 1 DF, 1X/DAY
     Dates: start: 20060216
  4. REYATAZ [Concomitant]
     Indication: HIV INFECTION
     Dosage: 300 MG, 1X/DAY
     Dates: start: 20040319
  5. NORVIR [Concomitant]
     Indication: HIV INFECTION
     Dosage: 100 MG, 1X/DAY
     Dates: start: 20040319
  6. FOSAVANCE [Concomitant]
     Indication: OSTEOPOROSIS
     Dosage: 1 DF, 1X/DAY
     Dates: start: 20060501
  7. PAROXETINE [Concomitant]
     Indication: DEPRESSION
     Dosage: 20 MG, 1X/DAY
     Dates: start: 20070202
  8. MEPRONIZINE [Concomitant]
     Indication: SLEEP DISORDER
     Dosage: 1 DF, 1X/DAY
     Dates: start: 20061201
  9. STRESAM [Concomitant]
     Indication: DEPRESSION
     Dosage: 50 MG, 1X/DAY
     Dates: start: 20090101
  10. ACETAMINOPHEN AND CODEINE PHOSPHATE [Concomitant]
     Indication: BACK PAIN
  11. TETRAZEPAM [Concomitant]
     Indication: BACK PAIN

REACTIONS (1)
  - HYDROCELE [None]
